FAERS Safety Report 11837465 (Version 1)
Quarter: 2015Q4

REPORT INFORMATION
  Report Type: Spontaneous
  Country: FR (occurrence: FR)
  Receive Date: 20151215
  Receipt Date: 20151215
  Transmission Date: 20160305
  Serious: Yes (Death, Life-Threatening, Hospitalization, Other)
  Sender: FDA-Public Use
  Company Number: FR-ROXANE LABORATORIES, INC.-2015-RO-02083RO

PATIENT
  Age: 65 Year
  Sex: Female

DRUGS (1)
  1. METHOTREXATE [Suspect]
     Active Substance: METHOTREXATE
     Indication: RHEUMATOID ARTHRITIS
     Route: 065

REACTIONS (7)
  - Interstitial lung disease [Unknown]
  - Histoplasmosis disseminated [Unknown]
  - Systemic inflammatory response syndrome [Unknown]
  - Multi-organ failure [Fatal]
  - Epstein-Barr viraemia [Unknown]
  - Stenotrophomonas infection [Unknown]
  - Herpes simplex [Unknown]
